FAERS Safety Report 4816402-5 (Version None)
Quarter: 2005Q4

REPORT INFORMATION
  Report Type: 
  Country: None (occurrence: None)
  Receive Date: 20051028
  Receipt Date: 20051018
  Transmission Date: 20060501
  Serious: Yes (Hospitalization)
  Sender: FDA-Public Use
  Company Number: 2005135568

PATIENT
  Age: 35 Year
  Sex: Female

DRUGS (6)
  1. AZITHROMYCIN [Suspect]
     Indication: PNEUMONIA
     Dosage: 500 MG, ORAL
     Route: 048
     Dates: start: 20050915
  2. LAMISIL [Concomitant]
  3. BISOLVON (BROMHEXINE HYDROCHLORIDE) [Concomitant]
  4. RESPLEN (EPRAZINONE HYDROCHLORIDE) [Concomitant]
  5. ROHYPNOL (FLUNITRAZEPAM) [Concomitant]
  6. ANTIBIOTICS (ANTIBIOTICS) [Concomitant]

REACTIONS (5)
  - ACUTE PSYCHOSIS [None]
  - CONDITION AGGRAVATED [None]
  - INSOMNIA [None]
  - MENTAL DISORDER [None]
  - STRESS [None]
